FAERS Safety Report 7241214-5 (Version None)
Quarter: 2011Q1

REPORT INFORMATION
  Report Type: 
  Country: None (occurrence: None)
  Receive Date: 20110124
  Receipt Date: 20110114
  Transmission Date: 20110831
  Serious: Yes (Death, Life-Threatening, Hospitalization, Other)
  Sender: FDA-Public Use
  Company Number: A0430157A

PATIENT
  Age: 84 Year
  Sex: Female
  Weight: 73.5 kg

DRUGS (8)
  1. AUGMENTIN '125' [Suspect]
     Dosage: 875MG TWICE PER DAY
     Route: 065
     Dates: start: 20030616, end: 20030630
  2. FLUOXETINE HYDROCHLORIDE [Concomitant]
     Dosage: 10MG PER DAY
  3. UNKNOWN DRUG [Concomitant]
     Indication: THYROID DISORDER
  4. ENBREL [Suspect]
     Indication: RHEUMATOID ARTHRITIS
     Dosage: 25MG TWO TIMES PER WEEK
     Route: 058
     Dates: start: 20021216, end: 20030706
  5. LANSOPRAZOLE [Concomitant]
     Dosage: 30MG PER DAY
  6. ISOSORBIDE DINITRATE [Concomitant]
     Dosage: 20MG TWICE PER DAY
  7. DIGOXIN [Concomitant]
     Dosage: 240MG PER DAY
  8. CLOPIDOGREL BISULFATE [Concomitant]
     Dosage: 75MG PER DAY

REACTIONS (9)
  - STAPHYLOCOCCAL INFECTION [None]
  - CARDIAC DISORDER [None]
  - COLITIS [None]
  - DIVERTICULITIS [None]
  - ABASIA [None]
  - ILL-DEFINED DISORDER [None]
  - PSORIASIS [None]
  - DIARRHOEA [None]
  - PSEUDOMEMBRANOUS COLITIS [None]
